FAERS Safety Report 4756170-9 (Version None)
Quarter: 2005Q3

REPORT INFORMATION
  Report Type: 
  Country: None (occurrence: None)
  Receive Date: 20050829
  Receipt Date: 20050829
  Transmission Date: 20060218
  Serious: Yes (Life-Threatening)
  Sender: FDA-Public Use
  Company Number: None

PATIENT
  Age: 54 Year
  Sex: Male
  Weight: 120 kg

DRUGS (12)
  1. ARIXTRA [Suspect]
     Indication: FEMUR FRACTURE
     Dosage: 2.5MG   DAILY  SUBCUTANEOUS
     Route: 058
     Dates: start: 20050514, end: 20050518
  2. METOPROLOL [Concomitant]
  3. FAMOTIDINE [Concomitant]
  4. DEXAMETHASONE [Concomitant]
  5. CEFAZOLIN [Concomitant]
  6. MORPHINE [Concomitant]
  7. PROMETHAZINE [Concomitant]
  8. MIDAZOLAM HCL [Concomitant]
  9. ONDANSETRON [Concomitant]
  10. DILAUDID [Concomitant]
  11. PERCOCET [Concomitant]
  12. BISACOD [Concomitant]

REACTIONS (2)
  - ANAEMIA [None]
  - GASTROINTESTINAL HAEMORRHAGE [None]
